FAERS Safety Report 13967950 (Version 1)
Quarter: 2017Q3

REPORT INFORMATION
  Report Type: Spontaneous
  Country: US (occurrence: US)
  Receive Date: 20170914
  Receipt Date: 20170914
  Transmission Date: 20171128
  Serious: No
  Sender: FDA-Public Use
  Company Number: US-HORIZON-DUE-0152-2017

PATIENT
  Age: 74 Year
  Sex: Female

DRUGS (1)
  1. DUEXIS [Suspect]
     Active Substance: FAMOTIDINE\IBUPROFEN
     Indication: PLANTAR FASCIITIS

REACTIONS (2)
  - Off label use [Unknown]
  - Pain in extremity [Unknown]
